FAERS Safety Report 12892774 (Version 2)
Quarter: 2017Q3

REPORT INFORMATION
  Report Type: Spontaneous
  Country: US (occurrence: US)
  Receive Date: 20161028
  Receipt Date: 20170712
  Transmission Date: 20171127
  Serious: Yes (Death, Hospitalization, Other)
  Sender: FDA-Public Use
  Company Number: US-009507513-1610USA013914

PATIENT
  Sex: Male
  Weight: 83.9 kg

DRUGS (1)
  1. JANUVIA [Suspect]
     Active Substance: SITAGLIPTIN PHOSPHATE
     Indication: TYPE 2 DIABETES MELLITUS
     Dosage: 100 MG, QAM
     Route: 048
     Dates: start: 20100518, end: 20131216

REACTIONS (69)
  - Blood pressure decreased [Unknown]
  - Dyspnoea [Unknown]
  - Tumour invasion [Unknown]
  - Knee arthroplasty [Unknown]
  - Palpitations [Unknown]
  - Asthenia [Unknown]
  - Diabetes mellitus inadequate control [Unknown]
  - Urinary tract infection [Recovered/Resolved]
  - Hypoglycaemia [Unknown]
  - Hypomagnesaemia [Unknown]
  - Anaemia [Unknown]
  - Asthenia [Unknown]
  - Pain in extremity [Unknown]
  - Sinus operation [Unknown]
  - Urinary incontinence [Unknown]
  - Cough [Unknown]
  - Pulmonary embolism [Unknown]
  - Cholangitis [Unknown]
  - Metastases to liver [Unknown]
  - Pyrexia [Recovered/Resolved]
  - Tachycardia [Unknown]
  - Pneumonia [Unknown]
  - Spinal column stenosis [Unknown]
  - Hypomagnesaemia [Unknown]
  - Intestinal obstruction [Unknown]
  - Pneumonia aspiration [Unknown]
  - Pyrexia [Unknown]
  - Diabetes mellitus [Unknown]
  - Fall [Unknown]
  - Rotator cuff syndrome [Unknown]
  - Leukocytosis [Unknown]
  - Epigastric discomfort [Unknown]
  - Anaemia [Unknown]
  - Inappropriate antidiuretic hormone secretion [Unknown]
  - Hyperlipidaemia [Unknown]
  - Hyperhidrosis [Unknown]
  - Sleep apnoea syndrome [Unknown]
  - Benign prostatic hyperplasia [Unknown]
  - Neutropenia [Unknown]
  - Sepsis [Unknown]
  - Hip arthroplasty [Unknown]
  - Pancreatic carcinoma [Unknown]
  - Hypertension [Unknown]
  - Asthenia [Unknown]
  - Syncope [Unknown]
  - Blood magnesium decreased [Unknown]
  - Arthralgia [Unknown]
  - Sepsis [Recovered/Resolved]
  - Coronary artery disease [Not Recovered/Not Resolved]
  - Chest discomfort [Unknown]
  - Presyncope [Unknown]
  - Liver function test abnormal [Unknown]
  - Osteoarthritis [Unknown]
  - Influenza [Unknown]
  - Prostate cancer [Unknown]
  - Hyponatraemia [Unknown]
  - Dyspnoea [Unknown]
  - Pneumonia [Not Recovered/Not Resolved]
  - Myocardial infarction [Unknown]
  - Pain in extremity [Unknown]
  - Chest pain [Unknown]
  - Tachycardia [Unknown]
  - Death [Fatal]
  - Dizziness [Unknown]
  - Dizziness [Unknown]
  - Myocardial infarction [Unknown]
  - Arthralgia [Unknown]
  - Eye pain [Unknown]
  - Cough [Unknown]

NARRATIVE: CASE EVENT DATE: 20100916
